FAERS Safety Report 14689335 (Version 9)
Quarter: 2020Q2

REPORT INFORMATION
  Report Type: Report from Study
  Country: US (occurrence: US)
  Receive Date: 20180328
  Receipt Date: 20200624
  Transmission Date: 20200713
  Serious: Yes (Other)
  Sender: FDA-Public Use
  Company Number: US-ASTELLAS-2018US014680

PATIENT
  Age: 79 Year
  Sex: Male

DRUGS (4)
  1. ENZALUTAMIDE [Suspect]
     Active Substance: ENZALUTAMIDE
     Route: 048
  2. ENZALUTAMIDE [Suspect]
     Active Substance: ENZALUTAMIDE
     Indication: PROSTATE CANCER
     Route: 048
     Dates: start: 20180321
  3. ENZALUTAMIDE [Suspect]
     Active Substance: ENZALUTAMIDE
     Route: 048
  4. ENZALUTAMIDE [Suspect]
     Active Substance: ENZALUTAMIDE
     Route: 048

REACTIONS (19)
  - Musculoskeletal stiffness [Unknown]
  - Hypertension [Unknown]
  - Sluggishness [Unknown]
  - Weight decreased [Unknown]
  - Arthralgia [Unknown]
  - Arthralgia [Unknown]
  - Muscular weakness [Unknown]
  - Diarrhoea [Unknown]
  - Diarrhoea [Unknown]
  - Amnesia [Unknown]
  - Diarrhoea [Unknown]
  - Hypertension [Unknown]
  - Diarrhoea [Unknown]
  - Nausea [Unknown]
  - Constipation [Unknown]
  - Fatigue [Unknown]
  - Blindness [Unknown]
  - Amnesia [Unknown]
  - Hypoaesthesia [Unknown]

NARRATIVE: CASE EVENT DATE: 20180321
